FAERS Safety Report 24642623 (Version 1)
Quarter: 2024Q4

REPORT INFORMATION
  Report Type: Spontaneous
  Country: US (occurrence: None)
  Receive Date: 20241120
  Receipt Date: 20241120
  Transmission Date: 20250114
  Serious: No
  Sender: Public
  Company Number: None

PATIENT
  Age: 79 Year
  Sex: Female
  Weight: 70.31 kg

DRUGS (1)
  1. AVSOLA [Suspect]
     Active Substance: INFLIXIMAB-AXXQ
     Indication: Rheumatoid arthritis
     Dosage: 361MG INTRAVENOUSLY AT ON WEEK 0, 2 AND 6 AS DIRECTED?
     Route: 042
     Dates: start: 202404

REACTIONS (1)
  - Lung neoplasm malignant [None]
